FAERS Safety Report 16011437 (Version 2)
Quarter: 2019Q1

REPORT INFORMATION
  Report Type: Spontaneous
  Country: RU (occurrence: RU)
  Receive Date: 20190227
  Receipt Date: 20190313
  Transmission Date: 20190418
  Serious: Yes (Life-Threatening, Hospitalization, Other)
  Sender: FDA-Public Use
  Company Number: RU-SA-2019SA039583

PATIENT
  Age: 11 Month
  Sex: Male
  Weight: 8 kg

DRUGS (1)
  1. MYOZYME [Suspect]
     Active Substance: ALGLUCOSIDASE ALFA
     Indication: GLYCOGEN STORAGE DISEASE TYPE II
     Dosage: 20 MG/KG, ONCE PER 2 WEEKS (3 BOTTLES EVERY TWO WEEKS)
     Route: 041
     Dates: start: 20180523

REACTIONS (3)
  - Condition aggravated [Recovering/Resolving]
  - Bronchial obstruction [Recovering/Resolving]
  - Dysphagia [Unknown]

NARRATIVE: CASE EVENT DATE: 20190203
